FAERS Safety Report 17220116 (Version 23)
Quarter: 2023Q1

REPORT INFORMATION
  Report Type: Report from Study
  Country: CA (occurrence: CA)
  Receive Date: 20191231
  Receipt Date: 20230324
  Transmission Date: 20230418
  Serious: Yes (Other)
  Sender: FDA-Public Use
  Company Number: CA-BAUSCH-BL-2019-062936

PATIENT
  Age: 60 Year
  Sex: Female
  Weight: 154.2 kg

DRUGS (13)
  1. CONTRAVE [Suspect]
     Active Substance: BUPROPION HYDROCHLORIDE\NALTREXONE HYDROCHLORIDE
     Indication: Weight control
     Dosage: 90MG/8MG (ONE TABLET IN THE MORNING)
     Route: 048
     Dates: start: 20191107, end: 20191113
  2. CONTRAVE [Suspect]
     Active Substance: BUPROPION HYDROCHLORIDE\NALTREXONE HYDROCHLORIDE
     Dosage: 90MG/8MG (ONE TABLET IN THE MORNING AND ONE TABLET IN THE EVENING)
     Route: 048
     Dates: start: 20191114, end: 20191120
  3. CONTRAVE [Suspect]
     Active Substance: BUPROPION HYDROCHLORIDE\NALTREXONE HYDROCHLORIDE
     Dosage: 90MG/8MG (TWO TABLETS IN THE MORNING AND ONE TABLET IN THE EVENING)
     Route: 048
     Dates: start: 20191121, end: 20191127
  4. CONTRAVE [Suspect]
     Active Substance: BUPROPION HYDROCHLORIDE\NALTREXONE HYDROCHLORIDE
     Dosage: 90MG/8MG (TWO TABLETS IN THE MORNING AND TWO TABLETS IN THE EVENING)
     Route: 048
     Dates: start: 20191128
  5. NORTRIPTYLINE [Suspect]
     Active Substance: NORTRIPTYLINE
     Indication: Depressed mood
     Dosage: UNK
     Route: 065
  6. HYDROCHLOROTHIAZIDE [Concomitant]
     Active Substance: HYDROCHLOROTHIAZIDE
     Indication: Hypertension
     Dosage: DAILY
     Route: 048
  7. NEXIUM I.V. [Concomitant]
     Active Substance: ESOMEPRAZOLE SODIUM
     Indication: Gastrooesophageal reflux disease
     Dosage: HS (AT BEDTIME) (1 IN 1 D)
     Route: 048
  8. VILAZODONE [Concomitant]
     Active Substance: VILAZODONE
     Indication: Depression
     Dosage: DAILY
     Route: 048
  9. IMOVANE [Concomitant]
     Active Substance: ZOPICLONE
     Indication: Insomnia
     Dosage: DAILY
     Route: 048
  10. TRAZODONE [Concomitant]
     Active Substance: TRAZODONE HYDROCHLORIDE
     Indication: Depression
     Dosage: DAILY
     Route: 048
  11. DOXEPIN [Concomitant]
     Active Substance: DOXEPIN
     Indication: Depression
     Dosage: DAILY ALSO REPORTED AS APO-DOXEPIN
     Route: 048
  12. LATUDA [Concomitant]
     Active Substance: LURASIDONE HYDROCHLORIDE
     Indication: Depression
     Dosage: DAILY
     Route: 048
  13. ESOMEPRAZOLE MAGNESIUM [Concomitant]
     Active Substance: ESOMEPRAZOLE MAGNESIUM
     Indication: Gastrooesophageal reflux disease
     Dosage: 1 IN 1 D
     Route: 048

REACTIONS (37)
  - Lower respiratory tract infection [Recovered/Resolved]
  - Suicidal ideation [Recovered/Resolved]
  - Fall [Unknown]
  - Sinusitis [Recovered/Resolved]
  - Limb injury [Unknown]
  - Head injury [Unknown]
  - Contusion [Not Recovered/Not Resolved]
  - Nasopharyngitis [Not Recovered/Not Resolved]
  - Food craving [Recovering/Resolving]
  - Joint injury [Recovered/Resolved]
  - Joint swelling [Recovered/Resolved]
  - Hypersomnia [Recovered/Resolved]
  - Symptom recurrence [Recovering/Resolving]
  - Back pain [Not Recovered/Not Resolved]
  - Laziness [Not Recovered/Not Resolved]
  - Osteoarthritis [Not Recovered/Not Resolved]
  - Binge eating [Not Recovered/Not Resolved]
  - Arthritis [Not Recovered/Not Resolved]
  - Soliloquy [Not Recovered/Not Resolved]
  - Apathy [Not Recovered/Not Resolved]
  - Feeling guilty [Not Recovered/Not Resolved]
  - Myalgia [Not Recovered/Not Resolved]
  - Memory impairment [Not Recovered/Not Resolved]
  - Headache [Not Recovered/Not Resolved]
  - Depression [Not Recovered/Not Resolved]
  - Dizziness [Unknown]
  - Nausea [Recovered/Resolved]
  - Asthenia [Recovering/Resolving]
  - Diarrhoea [Unknown]
  - Dry mouth [Not Recovered/Not Resolved]
  - Hypertension [Recovered/Resolved]
  - Initial insomnia [Recovering/Resolving]
  - Fatigue [Not Recovered/Not Resolved]
  - Depressed mood [Recovered/Resolved]
  - Balance disorder [Unknown]
  - Anxiety [Unknown]
  - Therapeutic product effect decreased [Unknown]

NARRATIVE: CASE EVENT DATE: 20191101
